FAERS Safety Report 16843430 (Version 1)
Quarter: 2019Q3

REPORT INFORMATION
  Report Type: Spontaneous
  Country: JP (occurrence: JP)
  Receive Date: 20190924
  Receipt Date: 20190924
  Transmission Date: 20191005
  Serious: Yes (Hospitalization)
  Sender: FDA-Public Use
  Company Number: JP-009507513-1909JPN001578J

PATIENT
  Age: 69 Year
  Sex: Female

DRUGS (2)
  1. ERELSA TABLETS 50MG [Suspect]
     Active Substance: ELBASVIR
     Indication: VIRAEMIA
     Dosage: 50 MILLIGRAM, QD
     Route: 048
     Dates: start: 20190704, end: 20190902
  2. GRAZYNA TABLETS 50MG [Suspect]
     Active Substance: GRAZOPREVIR
     Indication: VIRAEMIA
     Dosage: 100 MILLIGRAM, QD
     Route: 048
     Dates: start: 20190704, end: 20190902

REACTIONS (1)
  - Hepatic function abnormal [Unknown]

NARRATIVE: CASE EVENT DATE: 20190902
